FAERS Safety Report 9425953 (Version 2)
Quarter: 2013Q3

REPORT INFORMATION
  Report Type: Spontaneous
  Country: CA (occurrence: CA)
  Receive Date: 20130729
  Receipt Date: 20130829
  Transmission Date: 20140515
  Serious: Yes (Other)
  Sender: FDA-Public Use
  Company Number: CA-JNJFOC-20130711264

PATIENT
  Age: 61 Year
  Sex: Female
  Weight: 77.57 kg

DRUGS (23)
  1. TYLENOL ES EZ TAB 100S + 30S [Suspect]
     Indication: SPINAL PAIN
     Dosage: EVERY 3-4 HOURS
     Route: 048
  2. TYLENOL ES EZ TAB 100S + 30S [Suspect]
     Indication: SPINAL PAIN
     Dosage: FORMULATION UNSPECIFIED; EVERY 3-4 HOURS
     Route: 048
  3. TYLENOL ES EZ TAB 100S + 30S [Suspect]
     Indication: MIGRAINE
     Dosage: EVERY 3-4 HOURS
     Route: 048
  4. TYLENOL ES EZ TAB 100S + 30S [Suspect]
     Indication: MIGRAINE
     Dosage: FORMULATION UNSPECIFIED; EVERY 3-4 HOURS
     Route: 048
  5. TYLENOL EXTRA STRENGTH [Suspect]
     Route: 065
  6. TYLENOL EXTRA STRENGTH [Suspect]
     Indication: SPINAL PAIN
     Route: 065
  7. CELEBREX [Concomitant]
     Indication: OSTEOPOROSIS
     Dosage: 1 AM/2 PM
     Route: 065
  8. ELTROXIN [Concomitant]
     Indication: PRODUCT USED FOR UNKNOWN INDICATION
     Route: 065
  9. ALLOPURINOL [Concomitant]
     Indication: GOUT
     Route: 065
  10. DEXEDRINE [Concomitant]
     Indication: ATTENTION DEFICIT/HYPERACTIVITY DISORDER
     Route: 065
  11. DEXEDRINE [Concomitant]
     Indication: BIPOLAR DISORDER
     Route: 065
  12. DOMPERIDONE [Concomitant]
     Indication: GASTRIC DISORDER
     Route: 065
  13. POTASSIUM [Concomitant]
     Indication: HYPOKALAEMIA
     Route: 065
     Dates: start: 2008
  14. PROZAC [Concomitant]
     Indication: DEPRESSION
     Route: 065
  15. PANTOPRAZOLE [Concomitant]
     Indication: GASTROOESOPHAGEAL REFLUX DISEASE
     Route: 065
  16. PANTOPRAZOLE [Concomitant]
     Indication: GASTROOESOPHAGEAL REFLUX DISEASE
     Route: 065
  17. RANITIDINE [Concomitant]
     Indication: PROPHYLAXIS
     Dosage: MORNING
     Route: 065
  18. VITAMIN D [Concomitant]
     Indication: NUTRITIONAL SUPPLEMENTATION
     Route: 065
     Dates: start: 200905
  19. CALCIUM [Concomitant]
     Indication: GENERAL PHYSICAL CONDITION
     Route: 065
     Dates: start: 200905
  20. FERROUS GLUCONATE [Concomitant]
     Indication: IRON DEFICIENCY
     Dosage: MORNING. 2 YEARS
     Route: 065
     Dates: start: 201101
  21. SYMBICORT TURBUHALER [Concomitant]
     Indication: ASTHMA
     Dosage: 20 YEARS
     Route: 065
     Dates: start: 1993
  22. METRONIDAZOLE [Concomitant]
     Indication: DIVERTICULITIS
     Dosage: 2-3 TIMES DAILY 5 MONTHS
     Route: 065
     Dates: start: 201303
  23. CIPROFLOXACIN [Concomitant]
     Indication: DIVERTICULITIS
     Route: 065
     Dates: start: 20130318

REACTIONS (4)
  - Cough [Recovering/Resolving]
  - Leukaemia [Unknown]
  - Pharyngeal oedema [Recovering/Resolving]
  - Medication error [Unknown]
